FAERS Safety Report 19878638 (Version 4)
Quarter: 2021Q3

REPORT INFORMATION
  Report Type: Spontaneous
  Country: US (occurrence: US)
  Receive Date: 20210923
  Receipt Date: 20210924
  Transmission Date: 20211014
  Serious: Yes (Other)
  Sender: FDA-Public Use
  Company Number: US-CELGENEUS-USA-20210904279

PATIENT
  Sex: Female
  Weight: 64.92 kg

DRUGS (8)
  1. VARICELLA?ZOSTER VACCINE NOS [Concomitant]
     Active Substance: VARICELLA-ZOSTER VACCINE
     Indication: PRODUCT USED FOR UNKNOWN INDICATION
     Dosage: UNKNOWN
     Route: 065
  2. PREDNISONE. [Suspect]
     Active Substance: PREDNISONE
     Indication: PRODUCT USED FOR UNKNOWN INDICATION
     Dosage: UNKNOWN
     Route: 065
  3. HEPATITIS B VACCINE [Concomitant]
     Active Substance: HEPATITIS B VIRUS VACCINE
     Dosage: UNKNOWN
     Route: 065
     Dates: start: 20210913
  4. HEPATITIS B VACCINE [Concomitant]
     Active Substance: HEPATITIS B VIRUS VACCINE
     Indication: PRODUCT USED FOR UNKNOWN INDICATION
     Dosage: UNKNOWN
     Route: 065
  5. PROBIOTIC [Concomitant]
     Active Substance: PROBIOTICS NOS
     Indication: PRODUCT USED FOR UNKNOWN INDICATION
     Dosage: UNKNOWN
     Route: 065
  6. ZEPOSIA [Suspect]
     Active Substance: OZANIMOD HYDROCHLORIDE
     Indication: COLITIS ULCERATIVE
     Dosage: .92 MILLIGRAM
     Route: 048
     Dates: start: 20210826
  7. MULTIVITAMIN [Concomitant]
     Active Substance: VITAMINS
     Indication: PRODUCT USED FOR UNKNOWN INDICATION
     Dosage: UNKNOWN
     Route: 065
  8. VARICELLA?ZOSTER VACCINE NOS [Concomitant]
     Active Substance: VARICELLA-ZOSTER VACCINE
     Dosage: UNKNOWN
     Route: 065
     Dates: start: 20210913

REACTIONS (5)
  - Dizziness [Unknown]
  - Drug ineffective [Unknown]
  - Colitis ulcerative [Not Recovered/Not Resolved]
  - Cardiac flutter [Not Recovered/Not Resolved]
  - Hyperhidrosis [Unknown]

NARRATIVE: CASE EVENT DATE: 2021
